FAERS Safety Report 10183811 (Version 1)
Quarter: 2014Q2

REPORT INFORMATION
  Report Type: Spontaneous
  Country: US (occurrence: US)
  Receive Date: 20140520
  Receipt Date: 20140520
  Transmission Date: 20141212
  Serious: Yes (Other)
  Sender: FDA-Public Use
  Company Number: US-ASTRAZENECA-2014SE32610

PATIENT
  Age: 71 Year
  Sex: Female
  Weight: 96.6 kg

DRUGS (10)
  1. METOPROLOL SUCCINATE [Suspect]
     Indication: CARDIAC DISORDER
     Route: 048
     Dates: start: 201402
  2. METOPROLOL SUCCINATE [Suspect]
     Indication: CARDIAC DISORDER
     Route: 048
  3. AMIODARONE [Suspect]
  4. XERELTO [Concomitant]
     Route: 048
     Dates: start: 20140125
  5. BUMEX [Concomitant]
     Route: 048
     Dates: start: 2011
  6. MAGNESIUM [Concomitant]
     Dosage: DAILY
     Route: 048
  7. VITAMIN D [Concomitant]
     Dosage: DAILY
     Route: 048
  8. VITAMIN B [Concomitant]
     Dosage: DAILY
     Route: 048
  9. COQ 10 [Concomitant]
     Dosage: DAILY
     Route: 048
  10. FISH OIL [Concomitant]
     Dosage: DAILY
     Route: 048

REACTIONS (16)
  - Fall [Recovered/Resolved]
  - Ventricular fibrillation [Unknown]
  - Dizziness [Recovered/Resolved]
  - Dizziness [Recovered/Resolved]
  - Atrial fibrillation [Unknown]
  - Cardiac flutter [Not Recovered/Not Resolved]
  - Migraine [Recovered/Resolved with Sequelae]
  - Palpitations [Recovered/Resolved with Sequelae]
  - Rash [Not Recovered/Not Resolved]
  - Heart rate decreased [Recovered/Resolved with Sequelae]
  - Heart rate increased [Recovered/Resolved with Sequelae]
  - Gait disturbance [Not Recovered/Not Resolved]
  - Gastrointestinal oedema [Not Recovered/Not Resolved]
  - Ligament sprain [Not Recovered/Not Resolved]
  - Hypertension [Recovered/Resolved with Sequelae]
  - Blood pressure decreased [Recovered/Resolved with Sequelae]
